FAERS Safety Report 24637633 (Version 1)
Quarter: 2024Q4

REPORT INFORMATION
  Report Type: Spontaneous
  Country: US (occurrence: US)
  Receive Date: 20241119
  Receipt Date: 20241119
  Transmission Date: 20250115
  Serious: No
  Sender: SEPTODONT
  Company Number: US-SEPTODONT-2024018431

PATIENT

DRUGS (2)
  1. SEPTOCAINE [Suspect]
     Active Substance: ARTICAINE HYDROCHLORIDE\EPINEPHRINE BITARTRATE
     Indication: Dental local anaesthesia
     Route: 004
  2. Septodont Silver Syringe [Concomitant]
     Indication: Dental local anaesthesia

REACTIONS (4)
  - Product delivery mechanism issue [Unknown]
  - Product container seal issue [Unknown]
  - Product leakage [Unknown]
  - No adverse event [Unknown]
